FAERS Safety Report 8564796-X (Version None)
Quarter: 2012Q3

REPORT INFORMATION
  Report Type: 
  Country: None (occurrence: None)
  Receive Date: 20120803
  Receipt Date: 20120727
  Transmission Date: 20120928
  Serious: Yes (Life-Threatening, Hospitalization)
  Sender: FDA-Public Use
  Company Number: FR-AMGEN-FRANI2012042392

PATIENT
  Age: 71 Year
  Sex: Male
  Weight: 64 kg

DRUGS (8)
  1. DOXYCYCLINE [Concomitant]
  2. OXALIPLATIN [Suspect]
     Indication: COLORECTAL CANCER METASTATIC
     Dosage: 135 MG, Q2WK
     Route: 042
     Dates: start: 20120222, end: 20120530
  3. LEUCOVORIN CALCIUM [Concomitant]
     Indication: COLORECTAL CANCER METASTATIC
     Dosage: 680 MG, Q2WK
     Route: 042
     Dates: start: 20120222
  4. ALFUZOSIN HYDROCHLORIDE [Concomitant]
  5. ACETAMINOPHEN [Concomitant]
  6. FLUOROURACIL [Concomitant]
     Indication: COLORECTAL CANCER METASTATIC
     Dosage: 680 MG, Q2WK
     Route: 042
     Dates: start: 20120222
  7. TETRALYSAL [Concomitant]
  8. PANITUMUMAB [Suspect]
     Indication: COLORECTAL CANCER METASTATIC
     Dosage: 100 MG, Q2WK
     Dates: start: 20120222

REACTIONS (3)
  - RENAL FAILURE [None]
  - GRAND MAL CONVULSION [None]
  - EPILEPSY [None]
